FAERS Safety Report 5238872-3 (Version None)
Quarter: 2007Q1

REPORT INFORMATION
  Report Type: 
  Country: None (occurrence: None)
  Receive Date: 20070215
  Receipt Date: 20070207
  Transmission Date: 20070707
  Serious: Yes (Death, Hospitalization)
  Sender: FDA-Public Use
  Company Number: ES-PFIZER INC-2007010163

PATIENT
  Age: 88 Year
  Sex: Female
  Weight: 65 kg

DRUGS (9)
  1. CARDURAN NEO [Suspect]
     Indication: HYPERTENSION
     Route: 048
  2. SEVREDOL [Suspect]
     Indication: BACK PAIN
     Route: 048
     Dates: start: 20061124, end: 20061125
  3. DURAGESIC-100 [Suspect]
     Indication: BACK PAIN
     Dates: start: 20061122, end: 20061126
  4. PARACETAMOL [Suspect]
     Indication: BACK PAIN
     Route: 048
     Dates: start: 20061102, end: 20061122
  5. NOLOTIL /NOR/ [Suspect]
     Indication: BACK PAIN
     Route: 048
     Dates: start: 20061102, end: 20061122
  6. ACETYLSALICYLIC ACID SRT [Suspect]
     Indication: ISCHAEMIC CARDIOMYOPATHY
     Route: 048
  7. NSAID'S [Suspect]
     Indication: BACK PAIN
     Route: 048
     Dates: start: 20061027, end: 20061102
  8. ADOLONTA [Suspect]
     Indication: BACK PAIN
     Route: 048
     Dates: start: 20061027
  9. CO-RENITEC [Suspect]
     Indication: HYPERTENSION
     Route: 048
     Dates: start: 20060701

REACTIONS (6)
  - ACIDOSIS [None]
  - CONFUSIONAL STATE [None]
  - LEUKOCYTOSIS [None]
  - RENAL FAILURE ACUTE [None]
  - RENAL TUBULAR NECROSIS [None]
  - SHIFT TO THE LEFT [None]
